FAERS Safety Report 6276340-0 (Version None)
Quarter: 2009Q3

REPORT INFORMATION
  Report Type: 
  Country: None (occurrence: None)
  Receive Date: 20090722
  Receipt Date: 20090716
  Transmission Date: 20100115
  Serious: Yes (Hospitalization)
  Sender: FDA-Public Use
  Company Number: CZ-ROCHE-644439

PATIENT
  Age: 4 Year

DRUGS (1)
  1. RIVOTRIL [Suspect]
     Dosage: FREQUENCY: 1 DOSE
     Route: 048
     Dates: start: 20080901, end: 20080901

REACTIONS (9)
  - AGGRESSION [None]
  - AGITATION [None]
  - COORDINATION ABNORMAL [None]
  - CRYING [None]
  - DISORIENTATION [None]
  - DYSARTHRIA [None]
  - HYPERSENSITIVITY [None]
  - INSOMNIA [None]
  - PSYCHOMOTOR SEIZURES [None]
